FAERS Safety Report 26068964 (Version 3)
Quarter: 2025Q4

REPORT INFORMATION
  Report Type: Report from Study
  Country: US (occurrence: US)
  Receive Date: 20251120
  Receipt Date: 20251225
  Transmission Date: 20260118
  Serious: Yes (Hospitalization)
  Sender: DECIPHERA PHARMACEUTICALS
  Company Number: US-DECIPHERA PHARMACEUTICALS LLC-2025US001419

PATIENT
  Age: 63 Year
  Sex: Male

DRUGS (1)
  1. QINLOCK [Suspect]
     Active Substance: RIPRETINIB
     Indication: Metastases to lung
     Dosage: 150 MILLIGRAM, QD
     Route: 061
     Dates: start: 20250922

REACTIONS (6)
  - Hospitalisation [Unknown]
  - White blood cell count increased [Unknown]
  - Cystitis [Unknown]
  - Weight gain poor [Unknown]
  - Hyperkeratosis [Unknown]
  - Skin atrophy [Unknown]

NARRATIVE: CASE EVENT DATE: 20250101
